FAERS Safety Report 9345873 (Version 2)
Quarter: 2013Q4

REPORT INFORMATION
  Report Type: Spontaneous
  Country: FR (occurrence: FR)
  Receive Date: 20130613
  Receipt Date: 20131212
  Transmission Date: 20140711
  Serious: Yes (Life-Threatening, Hospitalization, Other)
  Sender: FDA-Public Use
  Company Number: FR-PFIZER INC-2013173709

PATIENT
  Age: 65 Year
  Sex: Male

DRUGS (2)
  1. CAMPTO [Suspect]
     Indication: GLIOBLASTOMA
     Dosage: UNK
     Route: 042
     Dates: start: 201211, end: 20130319
  2. AVASTIN [Suspect]
     Indication: GLIOBLASTOMA
     Dosage: UNK
     Route: 042
     Dates: start: 201211, end: 20130319

REACTIONS (2)
  - Large intestine perforation [Recovered/Resolved with Sequelae]
  - Septic shock [Unknown]
